FAERS Safety Report 10689357 (Version 1)
Quarter: 2014Q4

REPORT INFORMATION
  Report Type: Spontaneous
  Country: CA (occurrence: None)
  Receive Date: 20141231
  Receipt Date: 20141231
  Transmission Date: 20150529
  Serious: Yes (Other)
  Sender: FDA-Public Use
  Company Number: AMAG201400183

PATIENT
  Age: 73 Year
  Sex: Male
  Weight: 92 kg

DRUGS (14)
  1. FUROSEMIDE. [Concomitant]
     Active Substance: FUROSEMIDE
  2. CALCITRIOL. [Concomitant]
     Active Substance: CALCITRIOL
  3. HUMULIN ZN (INDULIN HUMAN ZINC SUSPENSION), 30/70 [Concomitant]
  4. OMEPRAZOLE. [Concomitant]
     Active Substance: OMEPRAZOLE
  5. FERAHEME [Suspect]
     Active Substance: FERUMOXYTOL NON-STOICHIOMETRIC MAGNETITE
     Indication: IRON DEFICIENCY
     Dosage: 510 MG, SINGLE, INTRAVENOUS
     Route: 042
     Dates: start: 20140515, end: 20140515
  6. VITAMIN E (TOCOPHERYL ACETATE) [Concomitant]
  7. SIMVASTATIN. [Concomitant]
     Active Substance: SIMVASTATIN
  8. ASPIRIN (ACETYLSALICYLIC ACID) [Concomitant]
     Active Substance: ASPIRIN
  9. FOLIC ACID. [Concomitant]
     Active Substance: FOLIC ACID
  10. SEVELAMER [Concomitant]
     Active Substance: SEVELAMER
  11. BISOPROLOL [Concomitant]
     Active Substance: BISOPROLOL
  12. CARVEDILOL CARBOPLATIN [Concomitant]
  13. LEVOTHYROXIN (LEVOTHYROXINE SODIUM) [Concomitant]
  14. VITAMIN B COMPLEX (CALCIUM PANTOLTHENATE, NICOTINAMIDE, PYRIDOXINE HYDROCHLORIDE, RIBOFLAVIN, THIAMINE HYDROCHLORIDE) [Concomitant]

REACTIONS (4)
  - Back pain [None]
  - Pruritus generalised [None]
  - Vomiting [None]
  - Flushing [None]

NARRATIVE: CASE EVENT DATE: 20140515
